FAERS Safety Report 21631612 (Version 2)
Quarter: 2023Q2

REPORT INFORMATION
  Report Type: Spontaneous
  Country: DE (occurrence: DE)
  Receive Date: 20221123
  Receipt Date: 20230414
  Transmission Date: 20230722
  Serious: Yes (Hospitalization)
  Sender: FDA-Public Use
  Company Number: DE-ALKEM LABORATORIES LIMITED-DE-ALKEM-2022-12708

PATIENT
  Age: 23 Year
  Sex: Male
  Weight: 78 kg

DRUGS (9)
  1. IBUPROFEN [Suspect]
     Active Substance: IBUPROFEN
     Indication: Premedication
     Dosage: 400 MILLIGRAM
     Route: 048
     Dates: start: 20220921
  2. METHYLPREDNISOLONE [Suspect]
     Active Substance: METHYLPREDNISOLONE
     Indication: Premedication
     Dosage: 100 MILLIGRAM
     Route: 042
     Dates: start: 20220921
  3. DIMETHINDENE [Suspect]
     Active Substance: DIMETHINDENE
     Indication: Premedication
     Dosage: 4 MILLIGRAM
     Route: 042
     Dates: start: 20220921
  4. OCREVUS [Suspect]
     Active Substance: OCRELIZUMAB
     Indication: Relapsing-remitting multiple sclerosis
     Dosage: UNK
     Route: 042
  5. OCREVUS [Suspect]
     Active Substance: OCRELIZUMAB
     Dosage: UNK
     Route: 042
  6. OCREVUS [Suspect]
     Active Substance: OCRELIZUMAB
     Dosage: 600 MILLIGRAM
     Route: 042
     Dates: start: 20220921
  7. OCREVUS [Suspect]
     Active Substance: OCRELIZUMAB
     Dosage: 600 MILLIGRAM
     Route: 042
  8. PREDNISOLONE [Suspect]
     Active Substance: PREDNISOLONE
     Indication: Premedication
     Dosage: 100 MILLIGRAM
     Route: 042
     Dates: start: 20220921
  9. ERGOCALCIFEROL [Concomitant]
     Active Substance: ERGOCALCIFEROL
     Indication: Product used for unknown indication
     Dosage: 400 INTERNATIONAL UNIT
     Route: 065

REACTIONS (7)
  - Mucosal disorder [Recovered/Resolved]
  - Dizziness [Recovered/Resolved]
  - Urticaria [Recovered/Resolved]
  - Sensation of foreign body [Recovered/Resolved]
  - Rash [Recovered/Resolved]
  - Fatigue [Recovered/Resolved]
  - Hypotension [Recovered/Resolved]

NARRATIVE: CASE EVENT DATE: 20220921
